FAERS Safety Report 5387013-0 (Version None)
Quarter: 2007Q3

REPORT INFORMATION
  Report Type: 
  Country: None (occurrence: None)
  Receive Date: 20070713
  Receipt Date: 20070710
  Transmission Date: 20080115
  Serious: Yes (Other)
  Sender: FDA-Public Use
  Company Number: US-GENENTECH-242183

PATIENT
  Age: 43 Year
  Sex: Male
  Weight: 104.76 kg

DRUGS (1)
  1. XOLAIR [Suspect]
     Indication: ASTHMA
     Dosage: 375 MG, SINGLE
     Route: 058
     Dates: start: 20050810

REACTIONS (3)
  - RHINORRHOEA [None]
  - URTICARIA [None]
  - WHEEZING [None]
